FAERS Safety Report 22956696 (Version 2)
Quarter: 2023Q4

REPORT INFORMATION
  Report Type: Report from Study
  Country: US (occurrence: US)
  Receive Date: 20230919
  Receipt Date: 20231018
  Transmission Date: 20240110
  Serious: No
  Sender: FDA-Public Use
  Company Number: US-ACADIA PHARMACEUTICALS INC.-ACA-2023-PIM-003719

PATIENT
  Age: 74 Year
  Sex: Female

DRUGS (23)
  1. NUPLAZID [Suspect]
     Active Substance: PIMAVANSERIN TARTRATE
     Indication: Parkinson^s disease
     Dosage: 34 MILLIGRAM, QD
     Route: 048
     Dates: start: 202307
  2. LEXAPRO [Suspect]
     Active Substance: ESCITALOPRAM OXALATE
     Dosage: UNK
     Dates: start: 20230906
  3. LEXAPRO [Suspect]
     Active Substance: ESCITALOPRAM OXALATE
     Dosage: DOSE INCREASED TO MAX DESIRED DOSE
     Dates: start: 20230910
  4. LEXAPRO [Suspect]
     Active Substance: ESCITALOPRAM OXALATE
     Dosage: DOSE DECREASED
  5. CLOBETASOL [Concomitant]
     Active Substance: CLOBETASOL
  6. RYTARY [Concomitant]
     Active Substance: CARBIDOPA\LEVODOPA
  7. AMANTADINE [Concomitant]
     Active Substance: AMANTADINE
  8. DROXIDOPA [Concomitant]
     Active Substance: DROXIDOPA
  9. FLUDROCORTISONE [Concomitant]
     Active Substance: FLUDROCORTISONE
  10. MIDODRINE [Concomitant]
     Active Substance: MIDODRINE
  11. OMEPRAZOLE [Concomitant]
     Active Substance: OMEPRAZOLE
  12. ARMOUR THYROID [Concomitant]
     Active Substance: THYROID, PORCINE
  13. ACIDOPHILUS [Concomitant]
     Active Substance: LACTOBACILLUS ACIDOPHILUS
  14. BIOTIN [Concomitant]
     Active Substance: BIOTIN
  15. CALCIUM [Concomitant]
     Active Substance: CALCIUM
  16. COLACE [Concomitant]
     Active Substance: DOCUSATE SODIUM
  17. MAGNESIUM [Concomitant]
     Active Substance: MAGNESIUM
  18. VITAMINS [Concomitant]
     Active Substance: VITAMINS
  19. SENNA LEAF [Concomitant]
     Active Substance: SENNA LEAF
  20. ZINC [Concomitant]
     Active Substance: ZINC
  21. ESCITALOPRAM [Concomitant]
     Active Substance: ESCITALOPRAM OXALATE
  22. PROGESTERONE [Concomitant]
     Active Substance: PROGESTERONE
  23. SUDAFED [Concomitant]
     Active Substance: PSEUDOEPHEDRINE HYDROCHLORIDE

REACTIONS (7)
  - Dyspepsia [Recovering/Resolving]
  - Swelling [Recovered/Resolved]
  - Oedema [Not Recovered/Not Resolved]
  - Muscle rigidity [Recovered/Resolved]
  - Pain [Recovered/Resolved]
  - Agitation [Recovered/Resolved]
  - Hallucination [Recovered/Resolved]

NARRATIVE: CASE EVENT DATE: 20230701
